FAERS Safety Report 8538578-9 (Version None)
Quarter: 2012Q3

REPORT INFORMATION
  Report Type: 
  Country: None (occurrence: None)
  Receive Date: 20120726
  Receipt Date: 20120717
  Transmission Date: 20120928
  Serious: Yes (Hospitalization, Other)
  Sender: FDA-Public Use
  Company Number: BR-JNJFOC-20120709179

PATIENT
  Sex: Female

DRUGS (3)
  1. METICORTEN [Concomitant]
     Indication: RHEUMATOID ARTHRITIS
     Route: 065
  2. REMICADE [Suspect]
     Route: 042
     Dates: start: 20120120, end: 20120501
  3. REMICADE [Suspect]
     Indication: RHEUMATOID ARTHRITIS
     Route: 042
     Dates: start: 20110704

REACTIONS (3)
  - DIVERTICULUM [None]
  - ANAEMIA [None]
  - HAEMORRHAGE [None]
